FAERS Safety Report 15187896 (Version 1)
Quarter: 2018Q3

REPORT INFORMATION
  Report Type: Spontaneous
  Country: FR (occurrence: FR)
  Receive Date: 20180724
  Receipt Date: 20180724
  Transmission Date: 20181010
  Serious: Yes (Hospitalization)
  Sender: FDA-Public Use
  Company Number: FR-SCIEGEN PHARMACEUTICALS INC-2018SCILIT00485

PATIENT

DRUGS (3)
  1. QUETIAPINE. [Suspect]
     Active Substance: QUETIAPINE
     Dosage: NEXT DAY, 100 MG, UNK (POSOLOGY)
     Route: 065
  2. QUETIAPINE. [Suspect]
     Active Substance: QUETIAPINE
     Dosage: THIRD DAY, 300 MG, UNK (POSOLOGY)
     Route: 065
  3. QUETIAPINE. [Suspect]
     Active Substance: QUETIAPINE
     Indication: BIPOLAR DISORDER
     Dosage: 50 MG, IN THE MORNING
     Route: 065

REACTIONS (4)
  - Disorientation [Recovering/Resolving]
  - Cognitive disorder [Recovering/Resolving]
  - Attention deficit/hyperactivity disorder [Recovering/Resolving]
  - Confusional state [Recovering/Resolving]
